FAERS Safety Report 17120740 (Version 1)
Quarter: 2019Q4

REPORT INFORMATION
  Report Type: Spontaneous
  Country: US (occurrence: US)
  Receive Date: 20191206
  Receipt Date: 20191206
  Transmission Date: 20200122
  Serious: Yes (Disabling, Other)
  Sender: FDA-Public Use
  Company Number: US-UCBSA-2017017693

PATIENT
  Age: 50 Year
  Sex: Female
  Weight: 66 kg

DRUGS (1)
  1. VIMPAT [Suspect]
     Active Substance: LACOSAMIDE
     Indication: EPILEPSY
     Dosage: 50 MG, 2X/DAY (BID)
     Route: 048
     Dates: start: 20170425, end: 20170503

REACTIONS (5)
  - Dizziness [Recovered/Resolved]
  - Paraesthesia [Recovered/Resolved]
  - Headache [Recovered/Resolved]
  - Somnolence [Recovered/Resolved]
  - Emotional disorder [Recovered/Resolved]

NARRATIVE: CASE EVENT DATE: 20170425
